FAERS Safety Report 14971093 (Version 1)
Quarter: 2018Q2

REPORT INFORMATION
  Report Type: Spontaneous
  Country: IT (occurrence: IT)
  Receive Date: 20180604
  Receipt Date: 20180604
  Transmission Date: 20180711
  Serious: Yes (Hospitalization)
  Sender: FDA-Public Use
  Company Number: IT-MYLANLABS-2018M1036090

PATIENT
  Age: 64 Year
  Sex: Male
  Weight: 85 kg

DRUGS (1)
  1. INDAPAMIDE. [Suspect]
     Active Substance: INDAPAMIDE
     Indication: HYPERTENSION
     Dosage: 2 MG, QD
     Dates: start: 20180215, end: 20180226

REACTIONS (3)
  - Blood pressure increased [Recovering/Resolving]
  - Palpitations [Recovering/Resolving]
  - Asthenia [Recovering/Resolving]

NARRATIVE: CASE EVENT DATE: 20180215
